FAERS Safety Report 16827218 (Version 1)
Quarter: 2019Q3

REPORT INFORMATION
  Report Type: Spontaneous
  Country: IT (occurrence: IT)
  Receive Date: 20190919
  Receipt Date: 20190919
  Transmission Date: 20191005
  Serious: Yes (Hospitalization)
  Sender: FDA-Public Use
  Company Number: IT-ROCHE-2407956

PATIENT
  Age: 65 Year
  Sex: Female

DRUGS (10)
  1. DILATREND [Concomitant]
     Active Substance: CARVEDILOL
  2. LINEZOLID. [Concomitant]
     Active Substance: LINEZOLID
     Route: 065
  3. GANCICLOVIR. [Suspect]
     Active Substance: GANCICLOVIR
     Indication: MENINGITIS
     Route: 042
     Dates: start: 20190624, end: 20190629
  4. AMIODAR [Concomitant]
     Active Substance: AMIODARONE
     Route: 065
  5. DECADRON [Concomitant]
     Active Substance: DEXAMETHASONE
     Dosage: FORM STRENGTH: 4MG/1ML
     Route: 065
  6. LANOXIN DIGOXIN [Concomitant]
  7. GANCICLOVIR. [Suspect]
     Active Substance: GANCICLOVIR
     Route: 042
  8. MERREM [Concomitant]
     Active Substance: MEROPENEM
     Route: 065
  9. LANTUS [Concomitant]
     Active Substance: INSULIN GLARGINE
  10. FERLIXIT [Concomitant]
     Active Substance: SODIUM FERRIC GLUCONATE COMPLEX

REACTIONS (1)
  - Hypertransaminasaemia [Recovering/Resolving]

NARRATIVE: CASE EVENT DATE: 20190626
